FAERS Safety Report 13968457 (Version 1)
Quarter: 2017Q3

REPORT INFORMATION
  Report Type: Spontaneous
  Country: AU (occurrence: AU)
  Receive Date: 20170914
  Receipt Date: 20170914
  Transmission Date: 20171128
  Serious: Yes (Other)
  Sender: FDA-Public Use
  Company Number: AU-ASPEN PHARMA TRADING LIMITED US-AG-2017-006422

PATIENT
  Sex: Female

DRUGS (2)
  1. TIOGUANINE [Suspect]
     Active Substance: THIOGUANINE ANHYDROUS
     Indication: CROHN^S DISEASE
     Dosage: DURING MAINTENANCE, THE DOSE WAS AT 20 TO 40 MG DAILY
     Route: 065
  2. ADALIMUMAB [Suspect]
     Active Substance: ADALIMUMAB
     Indication: CROHN^S DISEASE
     Dosage: INITIATED ADA AT STANDARD INDUCTION DOSING (160/80 MG WEEKS 0 AND 2), FOLLOWED BY MAINTENANCE (40 MG
     Route: 065

REACTIONS (2)
  - Breast cancer metastatic [Unknown]
  - Off label use [Unknown]
